FAERS Safety Report 13625272 (Version 1)
Quarter: 2017Q2

REPORT INFORMATION
  Report Type: Spontaneous
  Country: US (occurrence: US)
  Receive Date: 20170608
  Receipt Date: 20170608
  Transmission Date: 20170830
  Serious: Yes (Other)
  Sender: FDA-Public Use
  Company Number: US-ROCHE-1941129

PATIENT
  Age: 41 Year
  Sex: Female

DRUGS (18)
  1. MEDROL [Suspect]
     Active Substance: METHYLPREDNISOLONE
     Indication: PRODUCT USED FOR UNKNOWN INDICATION
     Route: 065
  2. CYMBALTA [Concomitant]
     Active Substance: DULOXETINE HYDROCHLORIDE
     Route: 048
  3. AMBIEN [Concomitant]
     Active Substance: ZOLPIDEM TARTRATE
     Route: 048
  4. EFFEXOR [Suspect]
     Active Substance: VENLAFAXINE HYDROCHLORIDE
     Indication: PRODUCT USED FOR UNKNOWN INDICATION
     Route: 048
  5. MORPHINE ER [Concomitant]
     Active Substance: MORPHINE
     Route: 048
  6. AMBIEN CR [Concomitant]
     Active Substance: ZOLPIDEM TARTRATE
     Route: 048
  7. ESZOPICLONE. [Concomitant]
     Active Substance: ESZOPICLONE
     Route: 048
  8. XELODA [Suspect]
     Active Substance: CAPECITABINE
     Indication: PRODUCT USED FOR UNKNOWN INDICATION
     Route: 048
     Dates: start: 2014
  9. FASLODEX [Concomitant]
     Active Substance: FULVESTRANT
     Dosage: 250 MG/5ML
     Route: 030
  10. DOXEPIN [Concomitant]
     Active Substance: DOXEPIN
     Route: 048
  11. ONDANSETRON [Concomitant]
     Active Substance: ONDANSETRON
     Route: 048
  12. TAMOXIFEN [Concomitant]
     Active Substance: TAMOXIFEN
  13. PROMETHAZINE [Concomitant]
     Active Substance: PROMETHAZINE\PROMETHAZINE HYDROCHLORIDE
     Route: 048
  14. XELODA [Suspect]
     Active Substance: CAPECITABINE
     Route: 048
     Dates: start: 20170412
  15. NORVASC [Suspect]
     Active Substance: AMLODIPINE BESYLATE
     Indication: PRODUCT USED FOR UNKNOWN INDICATION
     Route: 048
  16. NEURONTIN [Suspect]
     Active Substance: GABAPENTIN
     Indication: PRODUCT USED FOR UNKNOWN INDICATION
     Route: 065
  17. IBRANCE [Suspect]
     Active Substance: PALBOCICLIB
     Indication: PRODUCT USED FOR UNKNOWN INDICATION
     Route: 065
  18. XGEVA [Concomitant]
     Active Substance: DENOSUMAB
     Dosage: 120 MG/1.7 ML
     Route: 058

REACTIONS (32)
  - Anaemia [Unknown]
  - Productive cough [Unknown]
  - Hyperhidrosis [Unknown]
  - Metastases to skin [Unknown]
  - Dysuria [Unknown]
  - Neutropenia [Unknown]
  - Chills [Unknown]
  - Postmastectomy lymphoedema syndrome [Unknown]
  - Breast pain [Unknown]
  - Menopause [Unknown]
  - Retroperitoneal cancer [Unknown]
  - Cholangiocarcinoma [Unknown]
  - Dyspnoea [Unknown]
  - Nausea [Unknown]
  - Urinary tract infection [Unknown]
  - Metastases to peritoneum [Unknown]
  - Malaise [Unknown]
  - Upper respiratory tract infection [Unknown]
  - Dizziness [Unknown]
  - Arthralgia [Unknown]
  - Metastases to the mediastinum [Unknown]
  - Metastases to liver [Unknown]
  - Fibromyalgia [Unknown]
  - Bronchitis [Unknown]
  - Insomnia [Unknown]
  - Fatigue [Unknown]
  - Tumour pain [Unknown]
  - Bone cancer [Unknown]
  - Micturition urgency [Unknown]
  - Vomiting [Unknown]
  - Neuropathy peripheral [Unknown]
  - Hypertension [Unknown]

NARRATIVE: CASE EVENT DATE: 20140130
